FAERS Safety Report 19987574 (Version 2)
Quarter: 2021Q4

REPORT INFORMATION
  Report Type: Spontaneous
  Country: CA (occurrence: CA)
  Receive Date: 20211022
  Receipt Date: 20211119
  Transmission Date: 20220303
  Serious: Yes (Other)
  Sender: FDA-Public Use
  Company Number: CA-BAUSCH-BL-2021-035116

PATIENT
  Age: 54 Year
  Sex: Female
  Weight: 60.051 kg

DRUGS (2)
  1. ARESTIN [Suspect]
     Active Substance: MINOCYCLINE HYDROCHLORIDE
     Indication: Abscess
     Route: 004
     Dates: start: 20210529, end: 20210529
  2. ARESTIN [Suspect]
     Active Substance: MINOCYCLINE HYDROCHLORIDE

REACTIONS (4)
  - Immunoglobulin G4 related disease [Not Recovered/Not Resolved]
  - Drooling [Unknown]
  - Pain in jaw [Unknown]
  - Swelling face [Unknown]
